FAERS Safety Report 9102250 (Version 2)
Quarter: 2013Q2

REPORT INFORMATION
  Report Type: Spontaneous
  Country: CM (occurrence: CM)
  Receive Date: 20130218
  Receipt Date: 20130509
  Transmission Date: 20140414
  Serious: Yes (Hospitalization)
  Sender: FDA-Public Use
  Company Number: CM-009507513-1302CMR006821

PATIENT
  Age: 27 Year
  Sex: Male

DRUGS (2)
  1. MECTIZAN [Suspect]
     Indication: ONCHOCERCIASIS
     Dosage: 3 DF, ONCE
     Route: 048
     Dates: start: 20120726
  2. ALBENDAZOLE [Suspect]
     Indication: FILARIASIS LYMPHATIC
     Dosage: 1 DF, UNK
     Dates: start: 20120726

REACTIONS (4)
  - Conjunctival hyperaemia [Recovered/Resolved]
  - Altered state of consciousness [Recovered/Resolved]
  - Asthenia [Recovered/Resolved]
  - Pyrexia [Recovered/Resolved]
